FAERS Safety Report 13068841 (Version 1)
Quarter: 2016Q4

REPORT INFORMATION
  Report Type: Spontaneous
  Country: AU (occurrence: AU)
  Receive Date: 20161228
  Receipt Date: 20161228
  Transmission Date: 20170207
  Serious: Yes (Other)
  Sender: FDA-Public Use
  Company Number: AU-009507513-1601AUS001605

PATIENT
  Age: 69 Year
  Sex: Female

DRUGS (2)
  1. VYTORIN [Suspect]
     Active Substance: EZETIMIBE\SIMVASTATIN
     Dosage: 10/80, UNK
     Route: 048
  2. VYTORIN [Suspect]
     Active Substance: EZETIMIBE\SIMVASTATIN
     Dosage: 10/10, UNK
     Route: 048

REACTIONS (7)
  - Pain [Not Recovered/Not Resolved]
  - Arthralgia [Not Recovered/Not Resolved]
  - Abasia [Unknown]
  - Arthritis [Unknown]
  - Pain in extremity [Not Recovered/Not Resolved]
  - Blood cholesterol increased [Unknown]
  - Drug dose omission [Unknown]
